FAERS Safety Report 19521296 (Version 1)
Quarter: 2021Q3

REPORT INFORMATION
  Report Type: Spontaneous
  Country: DE (occurrence: DE)
  Receive Date: 20210712
  Receipt Date: 20210712
  Transmission Date: 20211014
  Serious: Yes (Other)
  Sender: FDA-Public Use
  Company Number: DE-BRACCO-2021DE02917

PATIENT
  Age: 70 Year
  Sex: Female

DRUGS (26)
  1. MULTIHANCE [Suspect]
     Active Substance: GADOBENATE DIMEGLUMINE
     Dosage: UNK, SINGLE
     Route: 065
     Dates: start: 2009, end: 2009
  2. DOTAREM [Suspect]
     Active Substance: GADOTERATE MEGLUMINE
     Dosage: UNK, SINGLE
     Route: 065
     Dates: start: 2016, end: 2016
  3. GADOVIST [Suspect]
     Active Substance: GADOBUTROL
     Dosage: UNK, SINGLE
     Route: 065
     Dates: start: 2010, end: 2010
  4. MAGNEVIST [Suspect]
     Active Substance: GADOPENTETATE DIMEGLUMINE
     Dosage: UNK, SINGLE
     Route: 065
     Dates: start: 2003, end: 2003
  5. GADOVIST [Suspect]
     Active Substance: GADOBUTROL
     Dosage: UNK, SINGLE
     Route: 065
     Dates: start: 2011, end: 2011
  6. MAGNEVIST [Suspect]
     Active Substance: GADOPENTETATE DIMEGLUMINE
     Dosage: UNK, SINGLE
     Route: 065
     Dates: start: 2004, end: 2004
  7. MAGNEVIST [Suspect]
     Active Substance: GADOPENTETATE DIMEGLUMINE
     Dosage: UNK, SINGLE
     Route: 065
     Dates: start: 2008, end: 2008
  8. MAGNEVIST [Suspect]
     Active Substance: GADOPENTETATE DIMEGLUMINE
     Dosage: UNK, SINGLE
     Route: 065
     Dates: start: 2001, end: 2001
  9. PROHANCE [Suspect]
     Active Substance: GADOTERIDOL
     Dosage: UNK, SINGLE
     Route: 065
     Dates: start: 2020, end: 2020
  10. PROHANCE [Suspect]
     Active Substance: GADOTERIDOL
     Dosage: UNK, SINGLE
     Route: 065
     Dates: start: 2021, end: 2021
  11. MULTIHANCE [Suspect]
     Active Substance: GADOBENATE DIMEGLUMINE
     Dosage: UNK, SINGLE
     Route: 065
     Dates: start: 2005, end: 2005
  12. DOTAREM [Suspect]
     Active Substance: GADOTERATE MEGLUMINE
     Dosage: UNK, SINGLE
     Route: 065
     Dates: start: 2018, end: 2018
  13. GADOVIST [Suspect]
     Active Substance: GADOBUTROL
     Dosage: UNK, SINGLE
     Route: 065
     Dates: start: 2012, end: 2012
  14. MAGNEVIST [Suspect]
     Active Substance: GADOPENTETATE DIMEGLUMINE
     Dosage: UNK, SINGLE
     Route: 065
     Dates: start: 1999, end: 1999
  15. MAGNEVIST [Suspect]
     Active Substance: GADOPENTETATE DIMEGLUMINE
     Dosage: UNK, SINGLE
     Route: 065
     Dates: start: 2006, end: 2006
  16. OMNISCAN [Suspect]
     Active Substance: GADODIAMIDE
     Dosage: UNK, SINGLE
     Route: 065
     Dates: start: 2007, end: 2007
  17. GADOVIST [Suspect]
     Active Substance: GADOBUTROL
     Dosage: UNK UNK, SINGLE
     Route: 065
     Dates: start: 2017, end: 2017
  18. GADOVIST [Suspect]
     Active Substance: GADOBUTROL
     Dosage: UNK, SINGLE
     Route: 065
     Dates: start: 2013, end: 2013
  19. MAGNEVIST [Suspect]
     Active Substance: GADOPENTETATE DIMEGLUMINE
     Dosage: UNK, SINGLE
     Route: 065
     Dates: start: 2005, end: 2005
  20. MULTIHANCE [Suspect]
     Active Substance: GADOBENATE DIMEGLUMINE
     Dosage: UNK, SINGLE
     Route: 065
     Dates: start: 2007, end: 2007
  21. DOTAREM [Suspect]
     Active Substance: GADOTERATE MEGLUMINE
     Dosage: UNK UNK, SINGLE
     Route: 065
     Dates: start: 2017, end: 2017
  22. MAGNEVIST [Suspect]
     Active Substance: GADOPENTETATE DIMEGLUMINE
     Dosage: UNK, SINGLE
     Route: 065
     Dates: start: 2002, end: 2002
  23. GADOVIST [Suspect]
     Active Substance: GADOBUTROL
     Dosage: UNK, SINGLE
     Route: 065
     Dates: start: 2015, end: 2015
  24. MULTIHANCE [Suspect]
     Active Substance: GADOBENATE DIMEGLUMINE
     Dosage: UNK, SINGLE
     Route: 065
     Dates: start: 2006, end: 2006
  25. DOTAREM [Suspect]
     Active Substance: GADOTERATE MEGLUMINE
     Dosage: UNK, SINGLE
     Route: 065
     Dates: start: 2014, end: 2014
  26. GADOVIST [Suspect]
     Active Substance: GADOBUTROL
     Dosage: UNK, SINGLE
     Route: 065
     Dates: start: 2016, end: 2016

REACTIONS (12)
  - Pain in extremity [Unknown]
  - Depression [Unknown]
  - Suicidal ideation [Unknown]
  - Movement disorder [Unknown]
  - Pain [Unknown]
  - Paraesthesia [Unknown]
  - Burning sensation [Unknown]
  - Peripheral swelling [Unknown]
  - Rash [Unknown]
  - Ocular hyperaemia [Unknown]
  - Sleep disorder [Unknown]
  - Anxiety [Unknown]
